FAERS Safety Report 6784313-4 (Version None)
Quarter: 2010Q2

REPORT INFORMATION
  Report Type: 
  Country: None (occurrence: None)
  Receive Date: 20100617
  Receipt Date: 20100607
  Transmission Date: 20101027
  Serious: Yes (Death)
  Sender: FDA-Public Use
  Company Number: 010007

PATIENT
  Age: 87 Year
  Sex: Female

DRUGS (6)
  1. PLETAL [Suspect]
     Indication: ARTERIOSCLEROSIS OBLITERANS
     Dosage: 50 MG, QD, ORAL
     Route: 048
     Dates: start: 20090319
  2. ASPIRIN [Concomitant]
  3. ANTIHYPERTENSIVES [Concomitant]
  4. B-BLOCKING AGENTS [Concomitant]
  5. ISOSORBIDE MONONITRATE [Concomitant]
  6. BONALON (ALENDRONATE SODIUM HYDRATE) [Concomitant]

REACTIONS (1)
  - RESPIRATORY ARREST [None]
